FAERS Safety Report 7639895-7 (Version None)
Quarter: 2011Q3

REPORT INFORMATION
  Report Type: 
  Country: None (occurrence: None)
  Receive Date: 20110727
  Receipt Date: 20110715
  Transmission Date: 20111222
  Serious: Yes (Hospitalization, Other)
  Sender: FDA-Public Use
  Company Number: PHEH2004US12293

PATIENT
  Sex: Female
  Weight: 56.689 kg

DRUGS (10)
  1. IMMUNOGLOBULINS [Concomitant]
     Indication: IMMUNOSUPPRESSION
     Dates: start: 20041201
  2. MELPHALAN HYDROCHLORIDE [Concomitant]
  3. PREMARIN [Concomitant]
  4. CLINDAMYCIN HCL [Concomitant]
     Indication: OSTEONECROSIS
     Dosage: 300 MG, TID
     Route: 065
     Dates: start: 20031113, end: 20040809
  5. AREDIA [Suspect]
     Indication: MULTIPLE MYELOMA
     Dosage: 90 MG, Q 4 WEEKS
     Dates: start: 19980918, end: 20020314
  6. PROVERA [Concomitant]
  7. NEUPOGEN [Concomitant]
  8. ZOMETA [Suspect]
     Dosage: 4 MG, Q 4 WEEKS
     Route: 042
     Dates: start: 20020411, end: 20040129
  9. RITUXAN [Concomitant]
  10. FOSAMAX [Concomitant]

REACTIONS (32)
  - THYROID CYST [None]
  - DIVERTICULITIS [None]
  - JAW DISORDER [None]
  - BONE SWELLING [None]
  - CORONARY ARTERY DISEASE [None]
  - NORMOCHROMIC NORMOCYTIC ANAEMIA [None]
  - OSTEONECROSIS OF JAW [None]
  - BONE DISORDER [None]
  - B-CELL LYMPHOMA [None]
  - FIBROCYSTIC BREAST DISEASE [None]
  - BLOOD IMMUNOGLOBULIN M INCREASED [None]
  - PLEURAL EFFUSION [None]
  - CHOLELITHIASIS [None]
  - BREAST HYPERPLASIA [None]
  - EMPYEMA [None]
  - CELLULITIS [None]
  - OSTEITIS [None]
  - DERMATITIS EXFOLIATIVE [None]
  - GINGIVAL RECESSION [None]
  - DENTAL ALVEOLAR ANOMALY [None]
  - PANCYTOPENIA [None]
  - MASS [None]
  - TYPE 2 DIABETES MELLITUS [None]
  - ATELECTASIS [None]
  - SEPSIS [None]
  - ANAEMIA [None]
  - BETA 2 MICROGLOBULIN INCREASED [None]
  - ABSCESS INTESTINAL [None]
  - BREAST CANCER IN SITU [None]
  - EPIDERMAL NECROSIS [None]
  - BLOOD IMMUNOGLOBULIN G DECREASED [None]
  - BLOOD IMMUNOGLOBULIN A DECREASED [None]
